FAERS Safety Report 9782433 (Version 2)
Quarter: 2013Q4

REPORT INFORMATION
  Report Type: Report from Study
  Country: US (occurrence: US)
  Receive Date: 20131226
  Receipt Date: 20131226
  Transmission Date: 20140711
  Serious: Yes (Other)
  Sender: FDA-Public Use
  Company Number: US-ROCHE-1305159

PATIENT
  Sex: Female

DRUGS (4)
  1. AVASTIN [Suspect]
     Indication: AGE-RELATED MACULAR DEGENERATION
     Dosage: RIGHT EYE
     Route: 050
     Dates: start: 20131029
  2. CIPROFLOXACIN [Concomitant]
     Dosage: 1 DROP, 4 DAYS BEFORE INJECTION THEN 7 DAYS AFTER
     Route: 065
  3. TIMOLOL MALEATE [Concomitant]
     Dosage: 1 DROP QAM BOTH EYES
     Route: 065
  4. TRAVATAN Z [Concomitant]
     Dosage: 1 DROP BOTH EYES QHS
     Route: 065

REACTIONS (5)
  - Macular oedema [Unknown]
  - Vitreous floaters [Unknown]
  - Macular degeneration [Unknown]
  - Choroidal neovascularisation [Unknown]
  - Melanocytic naevus [Unknown]
